FAERS Safety Report 6136242-7 (Version None)
Quarter: 2009Q1

REPORT INFORMATION
  Report Type: 
  Country: None (occurrence: None)
  Receive Date: 20090330
  Receipt Date: 20090323
  Transmission Date: 20090719
  Serious: Yes (Hospitalization, Disabling)
  Sender: FDA-Public Use
  Company Number: US-BIOGENIDEC-2009BI008888

PATIENT
  Age: 41 Year
  Sex: Female
  Weight: 52 kg

DRUGS (9)
  1. TYSABRI [Suspect]
     Indication: MULTIPLE SCLEROSIS
     Route: 042
     Dates: start: 20080110
  2. ZOCOR [Concomitant]
  3. ZOLOFT [Concomitant]
  4. ADVAIR HFA [Concomitant]
     Dosage: DOSE UNIT:
  5. SINGULAIR [Concomitant]
  6. KLONOPIN [Concomitant]
  7. TRAZODONE HCL [Concomitant]
  8. MULTI-VITAMIN [Concomitant]
  9. BACLOFEN [Concomitant]

REACTIONS (2)
  - FOOT FRACTURE [None]
  - ROAD TRAFFIC ACCIDENT [None]
